FAERS Safety Report 8460630-7 (Version None)
Quarter: 2012Q2

REPORT INFORMATION
  Report Type: 
  Country: None (occurrence: None)
  Receive Date: 20120622
  Receipt Date: 20120618
  Transmission Date: 20120825
  Serious: Yes (Other)
  Sender: FDA-Public Use
  Company Number: DE-ROCHE-1069561

PATIENT
  Sex: Male
  Weight: 98.5 kg

DRUGS (4)
  1. RITUXIMAB [Suspect]
     Indication: B-CELL LYMPHOMA
     Route: 042
     Dates: start: 20100415, end: 20120510
  2. ALLOPURINOL [Concomitant]
  3. PANTOPRAZOLE [Concomitant]
  4. LEVOTHYROXINE SODIUM [Concomitant]

REACTIONS (2)
  - TENDON RUPTURE [None]
  - TENDON DISORDER [None]
